FAERS Safety Report 5271298-5 (Version None)
Quarter: 2007Q1

REPORT INFORMATION
  Report Type: 
  Country: None (occurrence: None)
  Receive Date: 20070321
  Receipt Date: 20070309
  Transmission Date: 20070707
  Serious: Yes (Other)
  Sender: FDA-Public Use
  Company Number: PHBS2007AT04444

PATIENT
  Age: 19 Year
  Sex: Male

DRUGS (1)
  1. CLOZAPINE [Suspect]
     Indication: SCHIZOPHRENIA
     Dosage: 150MG ONCE DAILY
     Route: 048
     Dates: start: 20050101

REACTIONS (1)
  - EOSINOPENIA [None]
